FAERS Safety Report 25424825 (Version 1)
Quarter: 2025Q2

REPORT INFORMATION
  Report Type: Spontaneous
  Country: US (occurrence: None)
  Receive Date: 20250610
  Receipt Date: 20250610
  Transmission Date: 20250717
  Serious: Yes (Other)
  Sender: FDA-CTU
  Company Number: None

PATIENT
  Age: 25 Year
  Sex: Female
  Weight: 58.05 kg

DRUGS (3)
  1. SUN BUM SPF 50 PREMIUM MOISTURIZING SUNSCREEN [Suspect]
     Active Substance: AVOBENZONE\HOMOSALATE\OCTISALATE\OCTOCRYLENE
     Indication: Prophylaxis against solar radiation
     Dates: start: 20250608, end: 20250608
  2. SUN BUM FACE MIST SPF 45 [Suspect]
     Active Substance: AVOBENZONE\HOMOSALATE\OCTISALATE\OCTOCRYLENE
  3. SUN BUM SPF 50 PREMIUM MOISTURIZING SUNSCREEN [Suspect]
     Active Substance: AVOBENZONE\HOMOSALATE\OCTISALATE\OCTOCRYLENE

REACTIONS (1)
  - Application site rash [None]

NARRATIVE: CASE EVENT DATE: 20250608
